FAERS Safety Report 17803660 (Version 1)
Quarter: 2020Q2

REPORT INFORMATION
  Report Type: Spontaneous
  Country: AT (occurrence: AT)
  Receive Date: 20200519
  Receipt Date: 20200519
  Transmission Date: 20200714
  Serious: Yes (Other)
  Sender: FDA-Public Use
  Company Number: NVSC2020AT136061

PATIENT
  Age: 57 Year
  Weight: 100 kg

DRUGS (1)
  1. LISINOPRIL 1A PHARMA 5 MG - TABLETTEN [Suspect]
     Active Substance: LISINOPRIL
     Indication: HYPERTENSION
     Route: 048
     Dates: start: 20200216, end: 20200302

REACTIONS (4)
  - Tongue discomfort [Recovering/Resolving]
  - Tongue oedema [Recovered/Resolved]
  - Burning sensation [Recovered/Resolved]
  - Oedema peripheral [Recovered/Resolved]

NARRATIVE: CASE EVENT DATE: 202003
